FAERS Safety Report 13127464 (Version 3)
Quarter: 2017Q1

REPORT INFORMATION
  Report Type: Report from Study
  Country: None (occurrence: ES)
  Receive Date: 20170118
  Receipt Date: 20170302
  Transmission Date: 20170428
  Serious: Yes (Hospitalization)
  Sender: FDA-Public Use
  Company Number: ES-ABBVIE-17K-144-1836777-00

PATIENT
  Age: 76 Year
  Sex: Female

DRUGS (1)
  1. DUODOPA [Suspect]
     Active Substance: CARBIDOPA\LEVODOPA
     Indication: PARKINSON^S DISEASE
     Route: 050
     Dates: start: 201306

REACTIONS (6)
  - Incoherent [Unknown]
  - Haemoglobin decreased [Recovered/Resolved]
  - Intestinal haemorrhage [Not Recovered/Not Resolved]
  - Haemolysis [Unknown]
  - Haematochezia [Unknown]
  - Disorientation [Unknown]

NARRATIVE: CASE EVENT DATE: 201612
